FAERS Safety Report 6382261-5 (Version None)
Quarter: 2009Q3

REPORT INFORMATION
  Report Type: 
  Country: None (occurrence: None)
  Receive Date: 20090928
  Receipt Date: 20090928
  Transmission Date: 20100115
  Serious: No
  Sender: FDA-Public Use
  Company Number: None

PATIENT
  Sex: Female
  Weight: 95.1 kg

DRUGS (3)
  1. HEPARIN [Suspect]
     Indication: ANGIOPLASTY
     Dosage: 70 UNIT/KG X1 IV
     Route: 042
     Dates: start: 20090801, end: 20090901
  2. HEPARIN [Suspect]
     Indication: STENT PLACEMENT
     Dosage: 70 UNIT/KG X1 IV
     Route: 042
     Dates: start: 20090801, end: 20090901
  3. INTEGRILIN [Concomitant]

REACTIONS (2)
  - BLOOD PRESSURE DECREASED [None]
  - RETROPERITONEAL HAEMATOMA [None]
